FAERS Safety Report 18442025 (Version 3)
Quarter: 2020Q4

REPORT INFORMATION
  Report Type: Report from Study
  Country: CA (occurrence: CA)
  Receive Date: 20201029
  Receipt Date: 20201225
  Transmission Date: 20210114
  Serious: Yes (Hospitalization, Other)
  Sender: FDA-Public Use
  Company Number: PHHY2019CA056163

PATIENT
  Age: 84 Year
  Sex: Female

DRUGS (6)
  1. SANDOSTATIN [Suspect]
     Active Substance: OCTREOTIDE ACETATE
  2. SANDOSTATIN [Suspect]
     Active Substance: OCTREOTIDE ACETATE
     Indication: CARCINOID TUMOUR
     Dosage: UNK, ONCE/SINGLE
     Route: 058
     Dates: start: 20190306, end: 20190306
  3. SANDOSTATIN LAR DEPOT [Suspect]
     Active Substance: OCTREOTIDE ACETATE
     Dosage: 30 MG, QMO (EVERY 4 WEEKS)
     Route: 030
     Dates: start: 20190313
  4. SANDOSTATIN LAR DEPOT [Suspect]
     Active Substance: OCTREOTIDE ACETATE
     Indication: CARCINOID TUMOUR
     Dosage: 20 MG, QMO (EVERY 4 WEEKS)
     Route: 030
     Dates: start: 20190313
  5. SANDOSTATIN LAR DEPOT [Suspect]
     Active Substance: OCTREOTIDE ACETATE
     Dosage: UNK
     Route: 030
     Dates: start: 20190924
  6. SANDOSTATIN [Suspect]
     Active Substance: OCTREOTIDE ACETATE

REACTIONS (27)
  - Hot flush [Unknown]
  - Head injury [Unknown]
  - Rash [Recovering/Resolving]
  - Skin laceration [Unknown]
  - Joint injury [Unknown]
  - Weight decreased [Unknown]
  - Dyspepsia [Unknown]
  - Malignant neoplasm progression [Unknown]
  - Joint swelling [Unknown]
  - Dizziness [Not Recovered/Not Resolved]
  - Injection site discomfort [Unknown]
  - Bone cancer [Unknown]
  - Recurrent cancer [Unknown]
  - Carcinoid tumour [Unknown]
  - Pruritus [Unknown]
  - Asthenia [Unknown]
  - Fall [Unknown]
  - Diarrhoea [Not Recovered/Not Resolved]
  - Rash papular [Recovering/Resolving]
  - Blood pressure systolic increased [Unknown]
  - Flushing [Unknown]
  - Skin mass [Unknown]
  - Contusion [Unknown]
  - Muscle strain [Unknown]
  - Abdominal pain [Unknown]
  - Injection site haemorrhage [Unknown]
  - Injection site swelling [Unknown]

NARRATIVE: CASE EVENT DATE: 2019
